FAERS Safety Report 17840925 (Version 2)
Quarter: 2020Q2

REPORT INFORMATION
  Report Type: Spontaneous
  Country: US (occurrence: US)
  Receive Date: 20200529
  Receipt Date: 20200602
  Transmission Date: 20200714
  Serious: No
  Sender: FDA-Public Use
  Company Number: NVSC2020US148614

PATIENT
  Sex: Female

DRUGS (1)
  1. COSENTYX [Suspect]
     Active Substance: SECUKINUMAB
     Indication: PSORIATIC ARTHROPATHY
     Dosage: UNK UNK, UNKNOWN, BENEATH THE SKIN USUALLY VIA INJECTION
     Route: 058

REACTIONS (3)
  - Candida infection [Unknown]
  - Vitiligo [Unknown]
  - CD4 lymphocytes decreased [Unknown]
